FAERS Safety Report 9516706 (Version 1)
Quarter: 2013Q3

REPORT INFORMATION
  Report Type: Spontaneous
  Country: US (occurrence: None)
  Receive Date: 20130910
  Receipt Date: 20130910
  Transmission Date: 20140515
  Serious: Yes (Hospitalization, Disabling)
  Sender: FDA-Public Use
  Company Number: None

PATIENT
  Age: 34 Year
  Sex: Male
  Weight: 86.18 kg

DRUGS (2)
  1. TEGRETOL [Suspect]
     Indication: AFFECTIVE DISORDER
  2. DARVON [Suspect]
     Indication: PAIN
     Dosage: 1 THREE TIMES DAILY TAKEN BY MOUTH
     Route: 048

REACTIONS (3)
  - Vision blurred [None]
  - Hallucination, visual [None]
  - Ophthalmoplegia [None]
